FAERS Safety Report 6226222-5 (Version None)
Quarter: 2009Q2

REPORT INFORMATION
  Report Type: 
  Country: None (occurrence: None)
  Receive Date: 20090612
  Receipt Date: 20090512
  Transmission Date: 20091009
  Serious: No
  Sender: FDA-Public Use
  Company Number: US-ABBOTT-09P-163-0572965-00

PATIENT
  Sex: Female
  Weight: 143.01 kg

DRUGS (2)
  1. HUMIRA [Suspect]
     Indication: CROHN'S DISEASE
     Route: 058
     Dates: start: 20090422, end: 20090422
  2. HUMIRA [Suspect]
     Dates: start: 20090506

REACTIONS (4)
  - ANXIETY [None]
  - DIZZINESS [None]
  - FATIGUE [None]
  - PAIN [None]
